FAERS Safety Report 25623102 (Version 2)
Quarter: 2025Q3

REPORT INFORMATION
  Report Type: Report from Study
  Country: CA (occurrence: CA)
  Receive Date: 20250730
  Receipt Date: 20250923
  Transmission Date: 20251021
  Serious: Yes (Other)
  Sender: DR REDDYS
  Company Number: CA-DRL-USA-CLI/CAN/24/0002912

PATIENT
  Age: 68 Year
  Sex: Male
  Weight: 93.6 kg

DRUGS (3)
  1. ZOLEDRONIC ACID [Suspect]
     Active Substance: ZOLEDRONIC ACID
     Indication: Osteoporosis
     Dosage: 5MG/100ML
     Route: 042
     Dates: start: 20240126
  2. STELARA [Concomitant]
     Active Substance: USTEKINUMAB
     Indication: Product used for unknown indication
     Dosage: 90 MG SC, ONCE Q8 WEEKS
     Route: 058
  3. HYDROCORTISONE [Concomitant]
     Active Substance: HYDROCORTISONE
     Indication: Product used for unknown indication
     Dosage: 10MG IN THE AM AND 5MG IN THE LATE AFTERNOON.

REACTIONS (7)
  - Haematochezia [Not Recovered/Not Resolved]
  - Nausea [Unknown]
  - Arthralgia [Unknown]
  - Diarrhoea [Unknown]
  - Malaise [Not Recovered/Not Resolved]
  - Influenza like illness [Unknown]
  - Fatigue [Unknown]

NARRATIVE: CASE EVENT DATE: 20240901
